FAERS Safety Report 16030293 (Version 1)
Quarter: 2019Q1

REPORT INFORMATION
  Report Type: Spontaneous
  Country: US (occurrence: US)
  Receive Date: 20190304
  Receipt Date: 20190304
  Transmission Date: 20190418
  Serious: Yes (Other)
  Sender: FDA-Public Use
  Company Number: US-PFIZER INC-2019089110

PATIENT
  Age: 23 Year
  Sex: Female
  Weight: 88.45 kg

DRUGS (1)
  1. DEPO-PROVERA [Suspect]
     Active Substance: MEDROXYPROGESTERONE ACETATE
     Indication: CONTRACEPTION
     Dosage: UNK, EVERY 3 MONTHS NEARLY
     Route: 030

REACTIONS (8)
  - Epstein Barr virus positive mucocutaneous ulcer [Unknown]
  - Hypothalamo-pituitary disorder [Unknown]
  - Hypoglycaemia [Unknown]
  - Secondary adrenocortical insufficiency [Unknown]
  - Weight increased [Unknown]
  - Cortisol deficiency [Unknown]
  - Autoimmune disorder [Unknown]
  - Hyperinsulinaemia [Unknown]
